FAERS Safety Report 12587243 (Version 2)
Quarter: 2016Q3

REPORT INFORMATION
  Report Type: Spontaneous
  Country: US (occurrence: US)
  Receive Date: 20160725
  Receipt Date: 20160810
  Transmission Date: 20161109
  Serious: No
  Sender: FDA-Public Use
  Company Number: US-ASTRAZENECA-2016SE69248

PATIENT
  Age: 24198 Day
  Sex: Female
  Weight: 73.5 kg

DRUGS (4)
  1. PROAIR HFA [Concomitant]
     Active Substance: ALBUTEROL SULFATE
     Indication: CHRONIC OBSTRUCTIVE PULMONARY DISEASE
     Route: 055
  2. SYMBICORT [Suspect]
     Active Substance: BUDESONIDE\FORMOTEROL FUMARATE DIHYDRATE
     Indication: CHRONIC OBSTRUCTIVE PULMONARY DISEASE
     Dosage: 160/4.5 MCG, 120 INHALATIONS,2 PUFFS TWICE A DAY
     Route: 055
     Dates: start: 20160529
  3. SPIRIVA [Concomitant]
     Active Substance: TIOTROPIUM BROMIDE MONOHYDRATE
     Indication: CHRONIC OBSTRUCTIVE PULMONARY DISEASE
     Dosage: DAILY
     Route: 055
  4. NEBULIZER [Concomitant]
     Active Substance: DEVICE
     Indication: CHRONIC OBSTRUCTIVE PULMONARY DISEASE
     Route: 055

REACTIONS (5)
  - Product quality issue [Unknown]
  - Intentional product misuse [Unknown]
  - Malaise [Unknown]
  - Drug dose omission [Unknown]
  - Drug ineffective [Unknown]
